FAERS Safety Report 6346309-6 (Version None)
Quarter: 2009Q3

REPORT INFORMATION
  Report Type: 
  Country: None (occurrence: None)
  Receive Date: 20090909
  Receipt Date: 20090828
  Transmission Date: 20100115
  Serious: Yes (Hospitalization)
  Sender: FDA-Public Use
  Company Number: US-PFIZER INC-2009221612

PATIENT

DRUGS (2)
  1. ZOLOFT [Suspect]
  2. ZYVOX [Suspect]

REACTIONS (1)
  - BLOOD PRESSURE INCREASED [None]
